FAERS Safety Report 4818227-3 (Version None)
Quarter: 2005Q3

REPORT INFORMATION
  Report Type: 
  Country: None (occurrence: None)
  Receive Date: 20050929
  Receipt Date: 20050711
  Transmission Date: 20060218
  Serious: No
  Sender: FDA-Public Use
  Company Number: 05P-163-0305466-00

PATIENT
  Age: 28 Year
  Sex: Female
  Weight: 82.5547 kg

DRUGS (5)
  1. HUMIRA [Suspect]
     Indication: RHEUMATOID ARTHRITIS
     Dosage: 40 MG, 1 IN 2 WK, SUBCUTANEOUS
     Route: 058
     Dates: start: 20050701
  2. ESOMEPRAZOLE [Concomitant]
  3. CETIRIZINE HYDROCHLORIDE [Concomitant]
  4. VOLTAREN [Concomitant]
  5. PREDNISONE [Concomitant]

REACTIONS (1)
  - BREAST DISCHARGE [None]
